FAERS Safety Report 8808681 (Version 1)
Quarter: 2012Q4

REPORT INFORMATION
  Report Type: Spontaneous
  Country: US (occurrence: None)
  Receive Date: 20120921
  Receipt Date: 20120921
  Transmission Date: 20130627
  Serious: Yes (Hospitalization)
  Sender: FDA-Public Use
  Company Number: 2012033371

PATIENT
  Age: 67 Year
  Sex: Female

DRUGS (4)
  1. ALBURX [Suspect]
     Indication: BLOOD ALBUMIN DECREASED
     Dates: start: 20120910
  2. NEURONTIN (GABAPENTIN) [Concomitant]
  3. PROTONIX (PANTOPRAZOLE) [Concomitant]
  4. COLACE (DOCUSATE SODIUM) [Concomitant]

REACTIONS (4)
  - Chills [None]
  - Pyrexia [None]
  - Blood culture positive [None]
  - Fungaemia [None]
